FAERS Safety Report 20709567 (Version 1)
Quarter: 2022Q2

REPORT INFORMATION
  Report Type: Report from Study
  Country: US (occurrence: None)
  Receive Date: 20220414
  Receipt Date: 20220414
  Transmission Date: 20220721
  Serious: Yes (Hospitalization)
  Sender: FDA-Public Use
  Company Number: US-ROCHE-3065375

PATIENT
  Age: 78 Year
  Sex: Female

DRUGS (1)
  1. OBINUTUZUMAB [Suspect]
     Active Substance: OBINUTUZUMAB
     Indication: Chronic lymphocytic leukaemia
     Dosage: DATE OF LAST PROTOCOL TREATMENT/INTERVENTION PRIOR TO SAE: 01/FEB/2022?1403 AT A RATE OF 25 CC/HR.
     Route: 042
     Dates: start: 20220201

REACTIONS (1)
  - Metapneumovirus infection [Unknown]

NARRATIVE: CASE EVENT DATE: 20220202
